FAERS Safety Report 8833071 (Version 1)
Quarter: 2012Q4

REPORT INFORMATION
  Report Type: Spontaneous
  Country: ZA (occurrence: None)
  Receive Date: 20121005
  Receipt Date: 20121005
  Transmission Date: 20130627
  Serious: Yes (Other)
  Sender: FDA-Public Use
  Company Number: 2012P1059901

PATIENT

DRUGS (4)
  1. ISONIAZID [Suspect]
     Indication: TUBERCULOSIS
  2. RIFAMPICIN (NO PREF. NAME) [Suspect]
     Indication: TUBERCULOSIS
  3. ETHIONAMIDE [Suspect]
     Indication: TUBERCULOSIS
  4. ETHAMBUTOL [Suspect]
     Indication: TUBERCULOSIS

REACTIONS (2)
  - Stevens-Johnson syndrome [None]
  - Toxic epidermal necrolysis [None]
